FAERS Safety Report 21575132 (Version 3)
Quarter: 2022Q4

REPORT INFORMATION
  Report Type: Other
  Country: US (occurrence: US)
  Receive Date: 20221110
  Receipt Date: 20221219
  Transmission Date: 20230113
  Serious: No
  Sender: FDA-Public Use
  Company Number: US-GBT-016643

PATIENT
  Sex: Male

DRUGS (2)
  1. OXBRYTA [Suspect]
     Active Substance: VOXELOTOR
     Indication: Sickle cell disease
  2. HYDROXYUREA [Concomitant]
     Active Substance: HYDROXYUREA

REACTIONS (2)
  - Wrong technique in product usage process [Unknown]
  - Abdominal pain upper [Recovered/Resolved]
